FAERS Safety Report 14410491 (Version 1)
Quarter: 2018Q1

REPORT INFORMATION
  Report Type: Spontaneous
  Country: US (occurrence: US)
  Receive Date: 20180116
  Receipt Date: 20180116
  Transmission Date: 20180509
  Serious: No
  Sender: FDA-Public Use
  Company Number: None

PATIENT
  Age: 39 Year
  Sex: Female

DRUGS (1)
  1. COPAXONE [Suspect]
     Active Substance: GLATIRAMER ACETATE

REACTIONS (6)
  - Nausea [None]
  - Flushing [None]
  - Accidental exposure to product [None]
  - Erythema [None]
  - Anxiety [None]
  - Device malfunction [None]

NARRATIVE: CASE EVENT DATE: 20180116
